FAERS Safety Report 6339882-5 (Version None)
Quarter: 2009Q3

REPORT INFORMATION
  Report Type: 
  Country: None (occurrence: None)
  Receive Date: 20090903
  Receipt Date: 20090824
  Transmission Date: 20100115
  Serious: Yes (Hospitalization, Disabling, Other)
  Sender: FDA-Public Use
  Company Number: CA-ABBOTT-09P-028-0578079-00

PATIENT
  Sex: Male
  Weight: 50.848 kg

DRUGS (8)
  1. KALETRA [Suspect]
     Indication: DRUG USE FOR UNKNOWN INDICATION
     Dosage: 200MG/50MG TABS, 2 TABS BID
  2. VIRAMUNE [Concomitant]
     Indication: DRUG USE FOR UNKNOWN INDICATION
  3. ISENTRESS [Concomitant]
     Indication: DRUG USE FOR UNKNOWN INDICATION
  4. ANDROGEL [Concomitant]
     Indication: DRUG USE FOR UNKNOWN INDICATION
  5. LOPIRAMIDE [Concomitant]
     Indication: DRUG USE FOR UNKNOWN INDICATION
  6. FOLIC ACID [Concomitant]
     Indication: DRUG USE FOR UNKNOWN INDICATION
  7. VITAMIN B-12 [Concomitant]
     Indication: DRUG USE FOR UNKNOWN INDICATION
     Route: 050
  8. CALCIUM [Concomitant]
     Indication: DRUG USE FOR UNKNOWN INDICATION

REACTIONS (7)
  - DECREASED APPETITE [None]
  - INFECTION [None]
  - LEG AMPUTATION [None]
  - LOCALISED INFECTION [None]
  - MUSCLE CONTRACTURE [None]
  - WEIGHT DECREASED [None]
  - WOUND INFECTION BACTERIAL [None]
